FAERS Safety Report 22171495 (Version 1)
Quarter: 2023Q2

REPORT INFORMATION
  Report Type: Spontaneous
  Country: US (occurrence: None)
  Receive Date: 20230403
  Receipt Date: 20230403
  Transmission Date: 20230721
  Serious: No
  Sender: FDA-Public Use
  Company Number: None

PATIENT
  Age: 65 Year
  Sex: Female
  Weight: 103.42 kg

DRUGS (1)
  1. TALTZ [Suspect]
     Active Substance: IXEKIZUMAB
     Indication: Polyarthritis
     Dosage: OTHER QUANTITY : 80MG (1 PEN) ;?FREQUENCY : MONTHLY;?
     Route: 058
     Dates: start: 202203

REACTIONS (2)
  - Oropharyngeal pain [None]
  - Infection [None]
